FAERS Safety Report 7207250-X (Version None)
Quarter: 2011Q1

REPORT INFORMATION
  Report Type: 
  Country: None (occurrence: None)
  Receive Date: 20110103
  Receipt Date: 20101227
  Transmission Date: 20110831
  Serious: Yes (Hospitalization, Other)
  Sender: FDA-Public Use
  Company Number: DE-ROCHE-750605

PATIENT
  Sex: Male
  Weight: 66 kg

DRUGS (16)
  1. AVASTIN [Suspect]
     Indication: RENAL CELL CARCINOMA
     Route: 065
     Dates: start: 20081101, end: 20090917
  2. ASPIRIN [Concomitant]
  3. METOCLOPRAMIDE [Concomitant]
     Indication: PREMEDICATION
  4. LASIX [Concomitant]
  5. ZANTAC [Concomitant]
     Indication: PREMEDICATION
     Dates: start: 20091210
  6. TORISEL [Suspect]
     Route: 042
     Dates: start: 20100318, end: 20100325
  7. FENTANYL [Concomitant]
     Dosage: TRANSDERMAL PATCH
  8. ACETAMINOPHEN [Concomitant]
     Indication: PREMEDICATION
  9. TORISEL [Suspect]
     Route: 042
     Dates: start: 20100408
  10. FUROSEMID [Concomitant]
  11. CALCIUM/VITAMIN D3 [Concomitant]
  12. EVEROLIMUS [Concomitant]
     Dates: start: 20091101
  13. DELIX [Concomitant]
  14. NOVALGIN [Concomitant]
  15. LACTULOSE [Concomitant]
  16. TORISEL [Suspect]
     Indication: RENAL CELL CARCINOMA
     Route: 042
     Dates: start: 20091210, end: 20100304

REACTIONS (3)
  - NEOPLASM MALIGNANT [None]
  - HYPERKALAEMIA [None]
  - RENAL FAILURE ACUTE [None]
